FAERS Safety Report 9962136 (Version 1)
Quarter: 2014Q1

REPORT INFORMATION
  Report Type: Report from Study
  Country: US (occurrence: US)
  Receive Date: 20140305
  Receipt Date: 20140305
  Transmission Date: 20141002
  Serious: No
  Sender: FDA-Public Use
  Company Number: US-ABBVIE-13P-163-1110791-00

PATIENT
  Age: 56 Year
  Sex: Female

DRUGS (8)
  1. HUMIRA [Suspect]
     Indication: PSORIASIS
     Dates: start: 201212
  2. ALBUTEROL [Concomitant]
     Indication: ASTHMA
  3. SPIRIVA [Concomitant]
     Indication: ASTHMA
  4. OXYGEN [Concomitant]
     Indication: DYSPNOEA
     Dosage: 2 LITERS PER NASAL CANNULA
  5. SINGULAIR [Concomitant]
     Indication: HYPERSENSITIVITY
     Dosage: DAILY
  6. DIOVAN [Concomitant]
     Indication: BLOOD PRESSURE
  7. LASIX [Concomitant]
     Indication: PRODUCT USED FOR UNKNOWN INDICATION
     Dosage: 40 MG DAILY
  8. NIFEDIPINE [Concomitant]
     Indication: PRODUCT USED FOR UNKNOWN INDICATION
     Dosage: 90 MG DAILY

REACTIONS (3)
  - Eye pain [Not Recovered/Not Resolved]
  - Rash papular [Not Recovered/Not Resolved]
  - Headache [Not Recovered/Not Resolved]
